FAERS Safety Report 24315477 (Version 1)
Quarter: 2024Q3

REPORT INFORMATION
  Report Type: Spontaneous
  Country: US (occurrence: US)
  Receive Date: 20240913
  Receipt Date: 20240913
  Transmission Date: 20241016
  Serious: No
  Sender: KVK-TECH
  Company Number: US-KVK-TECH, INC-20240700091

PATIENT
  Sex: Female

DRUGS (1)
  1. LOMAIRA [Suspect]
     Active Substance: PHENTERMINE HYDROCHLORIDE
     Indication: Weight decreased
     Dosage: 8 MG, UNKNOWN
     Route: 065
     Dates: start: 20240717

REACTIONS (10)
  - Tachyphrenia [Unknown]
  - Binge eating [Unknown]
  - Hyperhidrosis [Unknown]
  - Arthralgia [Unknown]
  - Abnormal behaviour [Unknown]
  - Feeling jittery [Unknown]
  - Grandiosity [Unknown]
  - Euphoric mood [Unknown]
  - Palpitations [Unknown]
  - Insomnia [Unknown]

NARRATIVE: CASE EVENT DATE: 20240717
